FAERS Safety Report 8458463-0 (Version None)
Quarter: 2012Q2

REPORT INFORMATION
  Report Type: 
  Country: None (occurrence: None)
  Receive Date: 20120622
  Receipt Date: 20120611
  Transmission Date: 20120825
  Serious: Yes (Death, Life-Threatening, Hospitalization, Disabling, Other)
  Sender: FDA-Public Use
  Company Number: US-MYLANLABS-2010AC000059

PATIENT
  Sex: Female

DRUGS (58)
  1. CLONIDINE [Concomitant]
  2. COLACE [Concomitant]
  3. DARVOCET-N 50 [Concomitant]
  4. KEFLEX [Concomitant]
  5. SENSIPAR [Concomitant]
  6. XENADERM [Concomitant]
  7. ZOFRAN [Concomitant]
  8. ARANESP [Concomitant]
  9. NEPHROCAPS /01801401/ [Concomitant]
  10. NIFEREX FORTE [Concomitant]
  11. DIOVAN [Concomitant]
  12. FLAGYL [Concomitant]
  13. HUMULIN L [Concomitant]
  14. LASIX [Concomitant]
  15. MULTI-VITAMIN [Concomitant]
  16. PHOSLO [Concomitant]
  17. PLAVIX [Concomitant]
  18. VASOTEC [Concomitant]
  19. NIASPAN [Concomitant]
  20. DIGOXIN [Suspect]
     Route: 048
     Dates: start: 19930121, end: 20080101
  21. ATIVAN [Concomitant]
  22. CARDURA [Concomitant]
  23. CIPROFLOXACIN HYDROCHLORIDE [Concomitant]
  24. COREG [Concomitant]
  25. HECTOROL [Concomitant]
  26. INSULIN [Concomitant]
     Dosage: 70/30 35 UNITS QAM
  27. LIPITOR [Concomitant]
  28. MIRALAX /00754501/ [Concomitant]
  29. PROCRIT /00909301/ [Concomitant]
     Route: 058
  30. ROCALTROL [Concomitant]
  31. VANCOMYCIN [Concomitant]
  32. AUGMENTIN '125' [Concomitant]
  33. INDERAL [Concomitant]
  34. NEURONTIN [Concomitant]
  35. AVANDIA [Concomitant]
  36. ALTACE [Concomitant]
  37. COUMADIN [Concomitant]
  38. HALDOL [Concomitant]
  39. OSCAL /00108001/ [Concomitant]
  40. PROTONIX [Concomitant]
  41. ELAVIL [Concomitant]
  42. NIACIN [Concomitant]
  43. ASPIRIN [Concomitant]
  44. FOLIC ACID [Concomitant]
  45. IMDUR [Concomitant]
  46. NEXIUM [Concomitant]
  47. RENAGEL [Concomitant]
     Dosage: WITH MEALS
  48. SILVADENE [Concomitant]
  49. ZYPREXA [Concomitant]
  50. DURAGESIC-100 [Concomitant]
     Dosage: Q72H
  51. LANTUS [Concomitant]
  52. LEXAPRO [Concomitant]
  53. OXYCONTIN [Concomitant]
  54. PAXIL [Concomitant]
  55. SODIUM BICARBONATE [Concomitant]
  56. ACETAMINOPHEN [Concomitant]
  57. IRON SULFATETHIAMIN COMPOUND TAB [Concomitant]
  58. DOXYCYCLINE [Concomitant]

REACTIONS (155)
  - ILL-DEFINED DISORDER [None]
  - NAUSEA [None]
  - VOMITING [None]
  - CARDIO-RESPIRATORY ARREST [None]
  - RENAL FAILURE [None]
  - ANAEMIA [None]
  - RENAL FAILURE CHRONIC [None]
  - CARDIAC FAILURE CONGESTIVE [None]
  - DISEASE PROGRESSION [None]
  - HEPARIN-INDUCED THROMBOCYTOPENIA [None]
  - PULMONARY HYPERTENSION [None]
  - PULSE ABSENT [None]
  - RESPIRATORY FAILURE [None]
  - SHOCK [None]
  - DELIRIUM [None]
  - BLISTER [None]
  - CONFUSIONAL STATE [None]
  - CONSTIPATION [None]
  - DEHYDRATION [None]
  - DYSPNOEA PAROXYSMAL NOCTURNAL [None]
  - ECHOCARDIOGRAM ABNORMAL [None]
  - GASTRIC ULCER [None]
  - HEADACHE [None]
  - HIATUS HERNIA [None]
  - HYPOALBUMINAEMIA [None]
  - INTERVERTEBRAL DISC PROTRUSION [None]
  - LETHARGY [None]
  - MUSCLE SPASMS [None]
  - PHANTOM PAIN [None]
  - PNEUMONIA [None]
  - POLYDIPSIA [None]
  - PROTEINURIA [None]
  - INTRAOCULAR LENS IMPLANT [None]
  - SKIN ULCER [None]
  - VISION BLURRED [None]
  - DEEP VEIN THROMBOSIS [None]
  - DRY GANGRENE [None]
  - STUPOR [None]
  - GASTRITIS [None]
  - ARTHRITIS [None]
  - ASTHENIA [None]
  - CLOSTRIDIUM DIFFICILE COLITIS [None]
  - DEPRESSION [None]
  - COUGH [None]
  - ELECTROCARDIOGRAM ABNORMAL [None]
  - DYSPEPSIA [None]
  - ESCHAR [None]
  - FINGER AMPUTATION [None]
  - TOBACCO ABUSE [None]
  - PULMONARY VENO-OCCLUSIVE DISEASE [None]
  - LOCALISED OEDEMA [None]
  - TREATMENT NONCOMPLIANCE [None]
  - URINE ANALYSIS ABNORMAL [None]
  - INJURY [None]
  - BRADYARRHYTHMIA [None]
  - UNRESPONSIVE TO STIMULI [None]
  - BACK PAIN [None]
  - BLOOD GLUCOSE INCREASED [None]
  - CATARACT OPERATION [None]
  - HYPONATRAEMIA [None]
  - MELANOSIS COLI [None]
  - ORTHOPNOEA [None]
  - PERITONEAL DIALYSIS [None]
  - BLINDNESS UNILATERAL [None]
  - RESTLESSNESS [None]
  - SINUS TACHYCARDIA [None]
  - X-RAY ABNORMAL [None]
  - UTERINE LEIOMYOMA [None]
  - DEATH [None]
  - MITRAL VALVE INCOMPETENCE [None]
  - RESUSCITATION [None]
  - VENTRICULAR TACHYCARDIA [None]
  - SYNCOPE [None]
  - BREATH SOUNDS ABNORMAL [None]
  - DUODENAL ULCER [None]
  - MYALGIA [None]
  - INCONTINENCE [None]
  - PACKED RED BLOOD CELL TRANSFUSION [None]
  - POLYURIA [None]
  - POOR QUALITY SLEEP [None]
  - SOFT TISSUE INFLAMMATION [None]
  - ULTRASOUND DOPPLER ABNORMAL [None]
  - WHITE CLOT SYNDROME [None]
  - ISCHAEMIC CARDIOMYOPATHY [None]
  - MECHANICAL VENTILATION [None]
  - SEPSIS [None]
  - SPLENIC INFARCTION [None]
  - ABDOMINAL PAIN [None]
  - ABDOMINAL WALL ABSCESS [None]
  - CHILLS [None]
  - HYPERHIDROSIS [None]
  - GAIT DISTURBANCE [None]
  - DYSURIA [None]
  - ERYTHEMA [None]
  - FATIGUE [None]
  - BACTERIAL INFECTION [None]
  - HYPERTENSION [None]
  - HYPOAESTHESIA [None]
  - HYPOTENSION [None]
  - LEG AMPUTATION [None]
  - MACULAR OEDEMA [None]
  - NUCLEAR MAGNETIC RESONANCE IMAGING ABNORMAL [None]
  - ULTRASOUND ABDOMEN ABNORMAL [None]
  - URINARY TRACT INFECTION [None]
  - VISUAL ACUITY REDUCED [None]
  - FAT NECROSIS [None]
  - ECONOMIC PROBLEM [None]
  - DIABETES MELLITUS INADEQUATE CONTROL [None]
  - HALLUCINATION [None]
  - LEFT VENTRICULAR HYPERTROPHY [None]
  - PULSELESS ELECTRICAL ACTIVITY [None]
  - CEREBROVASCULAR ACCIDENT [None]
  - ASCITES [None]
  - ANXIETY [None]
  - DIABETIC RETINOPATHY [None]
  - DYSPNOEA EXERTIONAL [None]
  - ENDOSCOPY UPPER GASTROINTESTINAL TRACT ABNORMAL [None]
  - HYPERCHOLESTEROLAEMIA [None]
  - HYPOGLYCAEMIA [None]
  - MALAISE [None]
  - NECK PAIN [None]
  - EPISTAXIS [None]
  - OEDEMA PERIPHERAL [None]
  - DEBRIDEMENT [None]
  - ABDOMINAL DISCOMFORT [None]
  - ATRIAL FLUTTER [None]
  - CARDIAC VALVE DISEASE [None]
  - AMPUTATION STUMP PAIN [None]
  - AORTIC VALVE REPLACEMENT [None]
  - BREAST MASS [None]
  - EXTREMITY NECROSIS [None]
  - FLUID OVERLOAD [None]
  - CHOLELITHIASIS [None]
  - HYPERKALAEMIA [None]
  - PERIPHERAL ISCHAEMIA [None]
  - MENTAL STATUS CHANGES [None]
  - PALPITATIONS [None]
  - DISTURBANCE IN ATTENTION [None]
  - SKIN EXFOLIATION [None]
  - CARDIAC MURMUR [None]
  - URINE OUTPUT DECREASED [None]
  - CARDIOMYOPATHY [None]
  - ACUTE MYOCARDIAL INFARCTION [None]
  - CARDIAC VALVE REPLACEMENT COMPLICATION [None]
  - THROMBOSIS [None]
  - VITREOUS HAEMORRHAGE [None]
  - AGITATION [None]
  - BACTERAEMIA [None]
  - DECUBITUS ULCER [None]
  - DIABETIC NEUROPATHY [None]
  - DIALYSIS [None]
  - PAIN IN EXTREMITY [None]
  - LABORATORY TEST ABNORMAL [None]
  - LEUKOCYTOSIS [None]
  - PARAESTHESIA [None]
